FAERS Safety Report 17372577 (Version 1)
Quarter: 2020Q1

REPORT INFORMATION
  Report Type: Report from Study
  Country: CA (occurrence: CA)
  Receive Date: 20200205
  Receipt Date: 20200205
  Transmission Date: 20200409
  Serious: Yes (Other)
  Sender: FDA-Public Use
  Company Number: CA-TEVA-2020-CA-1178436

PATIENT
  Age: 52 Year
  Sex: Female

DRUGS (6)
  1. SANDOSTATIN [Suspect]
     Active Substance: OCTREOTIDE ACETATE
     Indication: NEUROENDOCRINE CARCINOMA METASTATIC
     Dosage: 600 MICROGRAM DAILY;
     Route: 058
  2. CIPROFLOXACIN. [Suspect]
     Active Substance: CIPROFLOXACIN
     Indication: PRODUCT USED FOR UNKNOWN INDICATION
     Route: 065
  3. METRONIDAZOLE. [Suspect]
     Active Substance: METRONIDAZOLE
     Indication: PRODUCT USED FOR UNKNOWN INDICATION
     Route: 065
  4. PRIMOVIST [Suspect]
     Active Substance: GADOXETATE DISODIUM
     Indication: PRODUCT USED FOR UNKNOWN INDICATION
     Route: 065
  5. SANDOSTATIN [Suspect]
     Active Substance: OCTREOTIDE ACETATE
     Indication: NEUROENDOCRINE TUMOUR
     Route: 030
  6. COLACE [Concomitant]
     Active Substance: DOCUSATE SODIUM
     Route: 065

REACTIONS (13)
  - Blood pressure increased [Unknown]
  - Contusion [Unknown]
  - Drug hypersensitivity [Unknown]
  - Limb discomfort [Unknown]
  - Haemorrhage [Unknown]
  - Abdominal pain [Unknown]
  - Nasopharyngitis [Unknown]
  - Rash papular [Unknown]
  - Nasal congestion [Unknown]
  - Abdominal distension [Unknown]
  - Epistaxis [Unknown]
  - Fatigue [Unknown]
  - Rubber sensitivity [Unknown]
